FAERS Safety Report 4888277-X (Version None)
Quarter: 2006Q1

REPORT INFORMATION
  Report Type: 
  Country: None (occurrence: None)
  Receive Date: 20060123
  Receipt Date: 20051208
  Transmission Date: 20060701
  Serious: Yes (Other)
  Sender: FDA-Public Use
  Company Number: PHFR2005GB04006

PATIENT
  Sex: Male

DRUGS (1)
  1. RITALIN [Suspect]
     Indication: ATTENTION DEFICIT/HYPERACTIVITY DISORDER
     Dosage: 40MG/DAY
     Route: 048
     Dates: start: 20051011

REACTIONS (3)
  - IRIS HYPOPIGMENTATION [None]
  - PAPILLOEDEMA [None]
  - VISION BLURRED [None]
